FAERS Safety Report 8269293-7 (Version None)
Quarter: 2012Q2

REPORT INFORMATION
  Report Type: 
  Country: None (occurrence: None)
  Receive Date: 20120409
  Receipt Date: 20120328
  Transmission Date: 20120825
  Serious: Yes (Other)
  Sender: FDA-Public Use
  Company Number: CA-ROCHE-1037613

PATIENT
  Sex: Female
  Weight: 59.02 kg

DRUGS (13)
  1. OXYCODONE HCL [Concomitant]
  2. ADVAIR DISKUS 100/50 [Concomitant]
     Route: 055
  3. METFORMIN HCL [Concomitant]
     Route: 048
  4. WARFARIN SODIUM [Concomitant]
     Dosage: 2-2.5 MG
     Route: 048
  5. SPIRONOLACTONE [Concomitant]
  6. TRANDOLAPRIL [Concomitant]
  7. FUROSEMIDE [Concomitant]
  8. NASACORT [Concomitant]
  9. ACTEMRA [Suspect]
     Indication: RHEUMATOID ARTHRITIS
     Route: 042
     Dates: start: 20120201
  10. PREDNISONE [Concomitant]
     Route: 048
  11. ESCITALOPRAM [Concomitant]
  12. ALENDRONATE SODIUM [Concomitant]
  13. RABEPRAZOLE SODIUM [Concomitant]
     Route: 048

REACTIONS (2)
  - PAIN [None]
  - RHEUMATOID ARTHRITIS [None]
